FAERS Safety Report 7381267-7 (Version None)
Quarter: 2011Q1

REPORT INFORMATION
  Report Type: 
  Country: None (occurrence: None)
  Receive Date: 20110329
  Receipt Date: 20110321
  Transmission Date: 20110831
  Serious: Yes (Disabling)
  Sender: FDA-Public Use
  Company Number: US-B.I. PHARMACEUTICALS,INC./RIDGEFIELD-2011-BP-02260BP

PATIENT
  Sex: Male

DRUGS (6)
  1. CADUET [Concomitant]
  2. PRADAXA [Suspect]
     Indication: ATRIAL FIBRILLATION
     Route: 048
     Dates: start: 20110110
  3. TRILIPIX [Concomitant]
     Dosage: 135 MG
  4. CARBAMAZEPINE [Concomitant]
     Dosage: 600 MG
  5. PANTOPRAZOLE [Concomitant]
     Dosage: 40 MG
  6. UROXATRAL [Concomitant]
     Dosage: 10 MG

REACTIONS (4)
  - CONVULSION [None]
  - OEDEMA PERIPHERAL [None]
  - THERAPY REGIMEN CHANGED [None]
  - DYSPNOEA EXERTIONAL [None]
